FAERS Safety Report 13207676 (Version 2)
Quarter: 2017Q1

REPORT INFORMATION
  Report Type: Spontaneous
  Country: EC (occurrence: EC)
  Receive Date: 20170209
  Receipt Date: 20170320
  Transmission Date: 20170428
  Serious: Yes (Other)
  Sender: FDA-Public Use
  Company Number: PHHY2017EC019822

PATIENT
  Age: 73 Year
  Sex: Female
  Weight: 79.83 kg

DRUGS (2)
  1. ACETAMINOFEN [Concomitant]
     Active Substance: ACETAMINOPHEN
     Indication: PRODUCT USED FOR UNKNOWN INDICATION
     Dosage: UNK UNK, Q8H
     Route: 065
     Dates: start: 20170201
  2. ACLASTA [Suspect]
     Active Substance: ZOLEDRONIC ACID
     Indication: PRODUCT USED FOR UNKNOWN INDICATION
     Dosage: UNK
     Route: 065
     Dates: start: 20170202, end: 20170203

REACTIONS (6)
  - Dizziness [Unknown]
  - Gait disturbance [Unknown]
  - Myalgia [Unknown]
  - Insomnia [Unknown]
  - Pyrexia [Unknown]
  - Vomiting [Unknown]

NARRATIVE: CASE EVENT DATE: 20170202
